FAERS Safety Report 5754161-2 (Version None)
Quarter: 2008Q2

REPORT INFORMATION
  Report Type: 
  Country: None (occurrence: None)
  Receive Date: 20080530
  Receipt Date: 20080526
  Transmission Date: 20081010
  Serious: Yes (Hospitalization)
  Sender: FDA-Public Use
  Company Number: IT-ASTRAZENECA-2008SE02669

PATIENT
  Sex: Male

DRUGS (1)
  1. LIDOCAINE [Suspect]

REACTIONS (1)
  - LARYNGEAL OEDEMA [None]
